FAERS Safety Report 16989801 (Version 5)
Quarter: 2020Q4

REPORT INFORMATION
  Report Type: Spontaneous
  Country: US (occurrence: US)
  Receive Date: 20191104
  Receipt Date: 20201023
  Transmission Date: 20210113
  Serious: Yes (Hospitalization, Other)
  Sender: FDA-Public Use
  Company Number: US-PFIZER INC-2018500622

PATIENT
  Age: 67 Year
  Sex: Female
  Weight: 137 kg

DRUGS (14)
  1. CALCIUM POLYCARBOPHIL. [Concomitant]
     Active Substance: CALCIUM POLYCARBOPHIL
     Dosage: 600 MG, 2X/DAY
     Route: 048
  2. OS CAL [CALCIUM CARBONATE;ERGOCALCIFEROL] [Concomitant]
     Dosage: 1 DF, 2X/DAY (500-5 MG- MCG)
     Route: 048
     Dates: end: 20191005
  3. VITAMIN B COMPLEX [Concomitant]
     Active Substance: CYANOCOBALAMIN\DEXPANTHENOL\NIACINAMIDE\PYRIDOXINE HYDROCHLORIDE\RIBOFLAVIN 5^-PHOSPHATE SODIUM\THIAMINE HYDROCHLORIDE\VITAMIN B COMPLEX
     Dosage: 1 DF, 1X/DAY
     Route: 048
     Dates: end: 20191005
  4. COUMADIN [Concomitant]
     Active Substance: WARFARIN SODIUM
     Dosage: 5 MG, UNK (5 DAYS/ WK)
     Route: 048
     Dates: end: 20191001
  5. DIOVAN HCT [Concomitant]
     Active Substance: HYDROCHLOROTHIAZIDE\VALSARTAN
     Dosage: 1 DF, 1X/DAY (160-25 MG)
     Route: 048
     Dates: end: 20191005
  6. SYNTHROID [Concomitant]
     Active Substance: LEVOTHYROXINE SODIUM
     Dosage: 137 UG, 1X/DAY
     Route: 048
     Dates: end: 20191005
  7. LYRICA [Suspect]
     Active Substance: PREGABALIN
     Indication: POLYNEUROPATHY
     Dosage: 75 MG, 3X/DAY
     Route: 048
  8. LYRICA [Suspect]
     Active Substance: PREGABALIN
     Indication: NEUROPATHY PERIPHERAL
  9. POTASSIUM GLUCONATE [Concomitant]
     Active Substance: POTASSIUM GLUCONATE
     Dosage: 550 MG, 1X/DAY
     Route: 048
     Dates: end: 20190520
  10. DELTASONE [PREDNISOLONE] [Concomitant]
     Dosage: 40 MG, 1X/DAY
     Route: 048
  11. ZIAC [Concomitant]
     Active Substance: BISOPROLOL FUMARATE\HYDROCHLOROTHIAZIDE
     Dosage: 1 DF, 1X/DAY (5-6.25 MG)
     Route: 048
  12. ARIMIDEX [Concomitant]
     Active Substance: ANASTROZOLE
     Dosage: 1 MG, 1X/DAY
     Route: 048
     Dates: end: 20191005
  13. CRESTOR [Concomitant]
     Active Substance: ROSUVASTATIN CALCIUM
     Dosage: 10 MG, 1X/DAY
     Route: 048
     Dates: end: 20191005
  14. COUMADIN [Concomitant]
     Active Substance: WARFARIN SODIUM
     Dosage: 2.5 MG, 2X/WEEK
     Route: 048
     Dates: end: 20191001

REACTIONS (41)
  - Myocardial infarction [Not Recovered/Not Resolved]
  - Gastrointestinal haemorrhage [Recovering/Resolving]
  - Hypokalaemia [Not Recovered/Not Resolved]
  - Lactic acidosis [Not Recovered/Not Resolved]
  - Leukocytosis [Recovering/Resolving]
  - Musculoskeletal chest pain [Recovered/Resolved]
  - Malaise [Unknown]
  - Decreased appetite [Unknown]
  - Nausea [Unknown]
  - Atrial fibrillation [Not Recovered/Not Resolved]
  - Haematochezia [Not Recovered/Not Resolved]
  - Anaemia [Not Recovered/Not Resolved]
  - Infection [Unknown]
  - Headache [Unknown]
  - Chills [Recovered/Resolved]
  - Hypersomnia [Unknown]
  - Sleep disorder [Unknown]
  - Renal injury [Not Recovered/Not Resolved]
  - Myalgia [Recovered/Resolved]
  - Hypophagia [Unknown]
  - Cough [Unknown]
  - Rectal haemorrhage [Unknown]
  - Loss of consciousness [Unknown]
  - Transaminases increased [Not Recovered/Not Resolved]
  - Hypoalbuminaemia [Not Recovered/Not Resolved]
  - Abdominal pain [Recovered/Resolved]
  - Anxiety [Unknown]
  - Asthenia [Unknown]
  - Hepatomegaly [Unknown]
  - Palpitations [Unknown]
  - Colitis ulcerative [Recovering/Resolving]
  - Fall [Unknown]
  - Ankle fracture [Unknown]
  - Hypokinesia [Recovering/Resolving]
  - Fatigue [Unknown]
  - Dyspnoea [Unknown]
  - Diarrhoea haemorrhagic [Recovering/Resolving]
  - Melaena [Unknown]
  - International normalised ratio increased [Unknown]
  - Pyrexia [Recovered/Resolved]
  - Lethargy [Unknown]

NARRATIVE: CASE EVENT DATE: 201907
